FAERS Safety Report 5570909-4 (Version None)
Quarter: 2007Q4

REPORT INFORMATION
  Report Type: 
  Country: None (occurrence: None)
  Receive Date: 20071221
  Receipt Date: 20071212
  Transmission Date: 20080405
  Serious: Yes (Hospitalization, Other)
  Sender: FDA-Public Use
  Company Number: JP-AVENTIS-200713384JP

PATIENT

DRUGS (2)
  1. ARAVA [Suspect]
     Indication: RHEUMATOID ARTHRITIS
     Route: 048
  2. ARAVA [Suspect]
     Dosage: DOSE: 10 OR 20 MG/DAY
     Route: 048

REACTIONS (6)
  - GASTRIC ULCER HAEMORRHAGE [None]
  - INTERSTITIAL LUNG DISEASE [None]
  - MUCOUS MEMBRANE DISORDER [None]
  - PANCYTOPENIA [None]
  - PYREXIA [None]
  - TOXIC SKIN ERUPTION [None]
